FAERS Safety Report 17633189 (Version 1)
Quarter: 2020Q2

REPORT INFORMATION
  Report Type: Spontaneous
  Country: US (occurrence: US)
  Receive Date: 20200406
  Receipt Date: 20200406
  Transmission Date: 20200713
  Serious: No
  Sender: FDA-Public Use
  Company Number: US-ASTRAZENECA-2020SE39894

PATIENT
  Age: 67 Year
  Sex: Female
  Weight: 61.7 kg

DRUGS (4)
  1. ALBUTEROL. [Concomitant]
     Active Substance: ALBUTEROL
     Dosage: 1-2 PUFFS FOUR TIMES A DAY
     Route: 055
  2. FLONASE [Concomitant]
     Active Substance: FLUTICASONE PROPIONATE
     Route: 065
  3. PULMICORT FLEXHALER [Suspect]
     Active Substance: BUDESONIDE
     Indication: ASTHMA
     Dosage: 2 PUFFS TWO TIMES A DAY
     Route: 055
  4. SINGULAIR [Concomitant]
     Active Substance: MONTELUKAST SODIUM
     Route: 065

REACTIONS (7)
  - Wrong technique in device usage process [Unknown]
  - Upper-airway cough syndrome [Unknown]
  - Intentional product misuse [Unknown]
  - Intentional device misuse [Unknown]
  - Cough [Unknown]
  - Medication error [Unknown]
  - Anxiety [Unknown]

NARRATIVE: CASE EVENT DATE: 2019
